FAERS Safety Report 19886354 (Version 3)
Quarter: 2021Q4

REPORT INFORMATION
  Report Type: Report from Study
  Country: US (occurrence: US)
  Receive Date: 20210928
  Receipt Date: 20211201
  Transmission Date: 20220303
  Serious: Yes (Other)
  Sender: FDA-Public Use
  Company Number: NVSC2021US217060

PATIENT
  Age: 46 Year
  Sex: Female

DRUGS (1)
  1. KESIMPTA [Suspect]
     Active Substance: OFATUMUMAB
     Indication: Product used for unknown indication
     Dosage: 20 MG, QMO
     Route: 058
     Dates: start: 20210607

REACTIONS (6)
  - Multiple sclerosis relapse [Unknown]
  - Burning sensation [Unknown]
  - Paraesthesia [Unknown]
  - Urinary tract infection [Recovering/Resolving]
  - Urinary tract pain [Unknown]
  - Anxiety [Not Recovered/Not Resolved]

NARRATIVE: CASE EVENT DATE: 20210901
